FAERS Safety Report 25346543 (Version 1)
Quarter: 2025Q2

REPORT INFORMATION
  Report Type: Spontaneous
  Country: GB (occurrence: GB)
  Receive Date: 20250522
  Receipt Date: 20250522
  Transmission Date: 20250716
  Serious: Yes (Other)
  Sender: MERZ
  Company Number: GB-MERZ PHARMACEUTICALS, LLC-ACO_177631_2025

PATIENT

DRUGS (1)
  1. DALFAMPRIDINE [Suspect]
     Active Substance: DALFAMPRIDINE
     Indication: Multiple sclerosis
     Dosage: 10 MILLIGRAM, BID
     Route: 048
     Dates: start: 202501

REACTIONS (4)
  - Upper limb fracture [Unknown]
  - Head injury [Unknown]
  - Fall [Unknown]
  - Balance disorder [Unknown]
